FAERS Safety Report 11672505 (Version 1)
Quarter: 2015Q4

REPORT INFORMATION
  Report Type: Spontaneous
  Country: US (occurrence: None)
  Receive Date: 20151027
  Receipt Date: 20151027
  Transmission Date: 20160304
  Serious: Yes (Other)
  Sender: FDA-Public Use
  Company Number: None

PATIENT
  Age: 4 Year
  Sex: Male
  Weight: 16.8 kg

DRUGS (5)
  1. FLINTSTONE MULTIVITAMIN [Concomitant]
  2. CHILDREN^S FIBER GUMMY [Concomitant]
  3. NOVOLOG [Concomitant]
     Active Substance: INSULIN ASPART
  4. VITAMIN C [Concomitant]
     Active Substance: ASCORBIC ACID
  5. LANTUS [Suspect]
     Active Substance: INSULIN GLARGINE
     Indication: TYPE 1 DIABETES MELLITUS
     Dosage: 4.5 UNITS  GIVEN INTO/UNDER THE SKIN
     Dates: start: 20151019, end: 20151026

REACTIONS (3)
  - Product quality issue [None]
  - Hyperglycaemia [None]
  - Drug ineffective [None]

NARRATIVE: CASE EVENT DATE: 20151026
